FAERS Safety Report 4407964-0 (Version None)
Quarter: 2004Q3

REPORT INFORMATION
  Report Type: 
  Country: None (occurrence: None)
  Receive Date: 20040716
  Receipt Date: 20040706
  Transmission Date: 20050211
  Serious: Yes (Hospitalization, Other)
  Sender: FDA-Public Use
  Company Number: 2004219708JP

PATIENT
  Age: 12 Year
  Sex: Female
  Weight: 40.8 kg

DRUGS (2)
  1. GENOTROPIN [Suspect]
     Indication: TURNER'S SYNDROME
     Dates: start: 20010501
  2. D-PENICILLAMINE (PENICILLAMINE) [Concomitant]

REACTIONS (8)
  - ARTHRITIS [None]
  - C-REACTIVE PROTEIN INCREASED [None]
  - CONDITION AGGRAVATED [None]
  - GLOMERULONEPHRITIS MEMBRANOUS [None]
  - HAEMOGLOBIN DECREASED [None]
  - JOINT RANGE OF MOTION DECREASED [None]
  - JOINT SWELLING [None]
  - RED BLOOD CELL SEDIMENTATION RATE INCREASED [None]
